FAERS Safety Report 19082970 (Version 1)
Quarter: 2021Q1

REPORT INFORMATION
  Report Type: Spontaneous
  Country: US (occurrence: US)
  Receive Date: 20210331
  Receipt Date: 20210331
  Transmission Date: 20210420
  Serious: Yes (Death)
  Sender: FDA-Public Use
  Company Number: None

PATIENT
  Age: 83 Year
  Sex: Male

DRUGS (1)
  1. CARBOPLATIN MDV 450MG/45ML [Suspect]
     Active Substance: CARBOPLATIN
     Route: 042
     Dates: start: 202010, end: 202103

REACTIONS (1)
  - Death [None]

NARRATIVE: CASE EVENT DATE: 20210329
